FAERS Safety Report 4677975-9 (Version None)
Quarter: 2005Q2

REPORT INFORMATION
  Report Type: 
  Country: None (occurrence: None)
  Receive Date: 20050531
  Receipt Date: 20050428
  Transmission Date: 20051028
  Serious: Yes (Death, Hospitalization)
  Sender: FDA-Public Use
  Company Number: 2005AP02567

PATIENT
  Age: 28225 Day
  Sex: Female

DRUGS (6)
  1. IRESSA [Suspect]
     Indication: LUNG ADENOCARCINOMA
     Route: 048
     Dates: start: 20050412, end: 20050418
  2. THYRADIN S [Concomitant]
     Route: 048
     Dates: start: 20040101
  3. KELNAC [Concomitant]
     Route: 048
     Dates: start: 20050330
  4. ZANTAC [Concomitant]
     Route: 048
     Dates: start: 20050415
  5. DEPAS [Concomitant]
     Route: 048
     Dates: start: 20050418
  6. MEDICON [Concomitant]
     Route: 048
     Dates: start: 20050330

REACTIONS (7)
  - HYPONATRAEMIA [None]
  - HYPOXIA [None]
  - LUNG DISORDER [None]
  - MULTI-ORGAN FAILURE [None]
  - NAUSEA [None]
  - PYREXIA [None]
  - RESPIRATORY FAILURE [None]
